FAERS Safety Report 21671719 (Version 1)
Quarter: 2022Q4

REPORT INFORMATION
  Report Type: Other
  Country: CA (occurrence: CA)
  Receive Date: 20221202
  Receipt Date: 20221202
  Transmission Date: 20230112
  Serious: Yes (Death, Other)
  Sender: FDA-Public Use
  Company Number: CA-ASPEN-GLO2022CA007037

PATIENT

DRUGS (8)
  1. BUSULFAN [Suspect]
     Active Substance: BUSULFAN
     Indication: Bone marrow conditioning regimen
     Dosage: UNK
     Route: 065
  2. BUSULFAN [Suspect]
     Active Substance: BUSULFAN
     Indication: Autologous haematopoietic stem cell transplant
     Dosage: UNK
     Route: 065
  3. BUSULFAN [Suspect]
     Active Substance: BUSULFAN
     Dosage: UNK
     Route: 042
  4. EQUINE THYMOCYTE IMMUNE GLOBULIN [Suspect]
     Active Substance: EQUINE THYMOCYTE IMMUNE GLOBULIN
  5. THYMOCYTE IMMUNE GLOBULIN NOS [Suspect]
     Active Substance: THYMOCYTE IMMUNE GLOBULIN NOS
     Indication: Bone marrow conditioning regimen
     Dosage: UNK
     Route: 042
  6. THYMOCYTE IMMUNE GLOBULIN NOS [Suspect]
     Active Substance: THYMOCYTE IMMUNE GLOBULIN NOS
     Indication: Autologous haematopoietic stem cell transplant
  7. CYCLOPHOSPHAMIDE [Suspect]
     Active Substance: CYCLOPHOSPHAMIDE
     Indication: Autologous haematopoietic stem cell transplant
     Dosage: 25 MG
     Route: 042
  8. CYCLOPHOSPHAMIDE [Suspect]
     Active Substance: CYCLOPHOSPHAMIDE
     Indication: Bone marrow conditioning regimen

REACTIONS (6)
  - Acute kidney injury [Fatal]
  - Atrial flutter [Fatal]
  - Enterococcal infection [Fatal]
  - Pericarditis constrictive [Fatal]
  - Right ventricular failure [Fatal]
  - Febrile neutropenia [Fatal]
